FAERS Safety Report 7203037-2 (Version None)
Quarter: 2010Q4

REPORT INFORMATION
  Report Type: 
  Country: None (occurrence: None)
  Receive Date: 20101229
  Receipt Date: 20101216
  Transmission Date: 20110411
  Serious: Yes (Death, Hospitalization, Other)
  Sender: FDA-Public Use
  Company Number: US-CELGENEUS-163-21880-10090421

PATIENT
  Age: 70 Year
  Sex: Male
  Weight: 67.192 kg

DRUGS (36)
  1. REVLIMID [Suspect]
     Indication: PROSTATE CANCER
     Route: 048
     Dates: start: 20100723
  2. TAXOTERE [Suspect]
     Indication: PROSTATE CANCER
     Route: 051
     Dates: start: 20100723
  3. ACETAMINOPHEN W/ CODEINE [Concomitant]
     Indication: PAIN
     Dosage: 300-30MG
     Route: 048
  4. ALBUTEROL [Concomitant]
     Indication: WHEEZING
     Route: 055
  5. ALBUTEROL [Concomitant]
     Route: 055
  6. ASPIRIN [Concomitant]
     Route: 048
  7. DEXAMETHASONE [Concomitant]
     Route: 048
  8. DEXAMETHASONE [Concomitant]
     Route: 065
     Dates: start: 20101001
  9. DEXAMETHASONE [Concomitant]
     Route: 065
     Dates: start: 20101001
  10. DOCUSATE SODIUM [Concomitant]
     Route: 048
  11. DOCUSATE SODIUM [Concomitant]
     Route: 048
  12. FUROSEMIDE [Concomitant]
     Route: 048
  13. FUROSEMIDE [Concomitant]
     Route: 051
  14. GOSERELIN ACETATE [Concomitant]
     Route: 058
  15. POTASSIUM CHLORIDE [Concomitant]
     Route: 065
  16. POTASSIUM CHLORIDE [Concomitant]
     Route: 048
  17. PREDNISONE [Concomitant]
     Route: 048
  18. COMPAZINE [Concomitant]
     Route: 065
  19. SIMVASTATIN [Concomitant]
     Route: 048
  20. SPIRIVA [Concomitant]
     Route: 065
  21. ZOLEDRONIC ACID [Concomitant]
     Dosage: 4MG/5ML
     Route: 051
  22. TINZAPARIN [Concomitant]
     Dosage: 12,000 UNITS/ML
     Route: 058
  23. VITAMIN K TAB [Concomitant]
     Route: 065
  24. NYSTATIN [Concomitant]
     Route: 048
  25. IPRATROPIUM BROMIDE [Concomitant]
     Route: 055
  26. OLANZAPINE [Concomitant]
     Route: 048
  27. OLANZAPINE [Concomitant]
     Route: 048
  28. ENOXAPARIN SODIUM [Concomitant]
     Route: 058
  29. GLUCAGON [Concomitant]
     Route: 030
  30. SENNA [Concomitant]
     Route: 048
  31. SUCRALFATE [Concomitant]
     Route: 048
  32. MAGNESIUM SULFATE [Concomitant]
     Route: 051
  33. LABETALOL HCL [Concomitant]
     Route: 051
  34. FENTANYL CITRATE [Concomitant]
     Route: 051
  35. INSULIN [Concomitant]
     Route: 065
  36. METOCLOPRAMIDE [Concomitant]
     Route: 051

REACTIONS (7)
  - ARTERIAL THROMBOSIS LIMB [None]
  - DEEP VEIN THROMBOSIS [None]
  - GAMMA RADIATION THERAPY TO PROSTATE [None]
  - PNEUMONIA [None]
  - PULMONARY EMBOLISM [None]
  - SEPSIS [None]
  - SPINAL CORD COMPRESSION [None]
